FAERS Safety Report 6793336-0 (Version None)
Quarter: 2010Q2

REPORT INFORMATION
  Report Type: 
  Country: None (occurrence: None)
  Receive Date: 20100624
  Receipt Date: 20091218
  Transmission Date: 20101027
  Serious: Yes (Other)
  Sender: FDA-Public Use
  Company Number: US-MYLANLABS-2009S1020913

PATIENT
  Age: 75 Year
  Sex: Male
  Weight: 99.79 kg

DRUGS (5)
  1. CLOZAPINE [Suspect]
     Indication: SCHIZOPHRENIA
     Route: 048
     Dates: start: 20030623, end: 20091130
  2. CLOZAPINE [Suspect]
     Route: 048
     Dates: start: 20030623, end: 20091130
  3. CLOZAPINE [Suspect]
     Route: 048
     Dates: start: 20091211
  4. LEXAPRO [Concomitant]
  5. CLONAZEPAM [Concomitant]

REACTIONS (1)
  - GRANULOCYTOPENIA [None]
